FAERS Safety Report 6434138-4 (Version None)
Quarter: 2009Q4

REPORT INFORMATION
  Report Type: 
  Country: None (occurrence: None)
  Receive Date: 20091110
  Receipt Date: 20090902
  Transmission Date: 20100525
  Serious: No
  Sender: FDA-Public Use
  Company Number: US-ASTRAZENECA-2009SE11085

PATIENT
  Sex: Female
  Weight: 63.5 kg

DRUGS (4)
  1. PRILOSEC OTC [Suspect]
     Route: 048
  2. LEXAPRO [Concomitant]
  3. METOFORMIN HCL ER [Concomitant]
  4. NEXIUM [Concomitant]

REACTIONS (2)
  - DRUG INEFFECTIVE [None]
  - MEDICATION ERROR [None]
